FAERS Safety Report 18509070 (Version 2)
Quarter: 2025Q2

REPORT INFORMATION
  Report Type: Spontaneous
  Country: IT (occurrence: IT)
  Receive Date: 20201117
  Receipt Date: 20250629
  Transmission Date: 20250717
  Serious: Yes (Other)
  Sender: AUROBINDO
  Company Number: IT-PFM-2020-20271

PATIENT
  Age: 79 Year
  Sex: Male

DRUGS (7)
  1. AZITHROMYCIN [Interacting]
     Active Substance: AZITHROMYCIN
     Indication: COVID-19
     Dosage: 500 MILLIGRAM, ONCE A DAY ((1/DAY))
     Route: 065
  2. AZITHROMYCIN [Interacting]
     Active Substance: AZITHROMYCIN
     Route: 065
  3. BISOPROLOL [Interacting]
     Active Substance: BISOPROLOL
     Indication: COVID-19
     Dosage: 2.5 MILLIGRAM, ONCE A DAY (1/DAY)
     Route: 065
  4. ENTECAVIR [Interacting]
     Active Substance: ENTECAVIR
     Indication: COVID-19
     Dosage: 0.5 MILLIGRAM, ONCE A DAY (1/DAY)
     Route: 065
  5. ENOXAPARIN SODIUM [Interacting]
     Active Substance: ENOXAPARIN SODIUM
     Indication: COVID-19
     Dosage: 6000 INTERNATIONAL UNIT, TWO TIMES A DAY
     Route: 065
  6. HYDROXYCHLOROQUINE [Interacting]
     Active Substance: HYDROXYCHLOROQUINE
     Indication: COVID-19
     Dosage: 200 MILLIGRAM, ONCE A DAY ((1/DAY))
     Route: 065
  7. METHYLPREDNISOLONE [Interacting]
     Active Substance: METHYLPREDNISOLONE
     Indication: COVID-19
     Dosage: 20 MILLIGRAM, ONCE A DAY (1/DAY)
     Route: 065

REACTIONS (5)
  - Cholecystitis [Recovered/Resolved]
  - Haemorrhagic cholecystitis [Recovered/Resolved]
  - Product use in unapproved indication [Unknown]
  - Drug interaction [Unknown]
  - Off label use [Unknown]
